FAERS Safety Report 21042706 (Version 1)
Quarter: 2022Q3

REPORT INFORMATION
  Report Type: Spontaneous
  Country: US (occurrence: US)
  Receive Date: 20220705
  Receipt Date: 20220705
  Transmission Date: 20221027
  Serious: Yes (Other)
  Sender: FDA-Public Use
  Company Number: US-AVET LIFESCIENCES LTD-2022-AVET-000109

PATIENT
  Age: 69 Year
  Sex: Female

DRUGS (24)
  1. HYDROXYZINE HYDROCHLORIDE [Suspect]
     Active Substance: HYDROXYZINE HYDROCHLORIDE
     Indication: Anxiety
     Dosage: 50 MILLIGRAM, 1 TABLET AT BEDTIME
  2. CARVEDILOL [Suspect]
     Active Substance: CARVEDILOL
     Indication: Hypertension
     Dosage: 6.25 MILLIGRAM, 1 TABLET IN THE MORNING AND BEDTIME
  3. DULOXETINE [Suspect]
     Active Substance: DULOXETINE
     Indication: Neuropathy peripheral
     Dosage: 60 MILLIGRAM, 1 CAPSULE IN THE MORNING
  4. ALPRAZOLAM [Concomitant]
     Active Substance: ALPRAZOLAM
     Indication: Anxiety
     Dosage: 0.5 MILLIGRAM, 1 TABLET AS NEEDED
  5. DILTIAZEM [Concomitant]
     Active Substance: DILTIAZEM
     Indication: Atrial fibrillation
     Dosage: 120 MILLIGRAM, 1 TABLET IN THE MORNING
  6. ASPIRIN [Concomitant]
     Active Substance: ASPIRIN
     Dosage: 81 MILLIGRAM, 1 TABLET IN THE MORNING
  7. APIXABAN [Concomitant]
     Active Substance: APIXABAN
     Dosage: 5 MILLIGRAM, 1 TABLET IN THE MORNING AND EVENING
  8. ALBUTEROL [Concomitant]
     Active Substance: ALBUTEROL
     Indication: Chronic obstructive pulmonary disease
     Dosage: 90 MICROGRAM, 2 PUFFS EVERY 6 H AS NEEDED
  9. ALBUTEROL\IPRATROPIUM [Concomitant]
     Active Substance: ALBUTEROL\IPRATROPIUM
     Indication: Chronic obstructive pulmonary disease
     Dosage: 0.5 MG?3 MG, 1 VIAL VIA NEBULIZER FOUR TIMES DAILY
  10. TIOTROPIUM [Concomitant]
     Active Substance: TIOTROPIUM
     Indication: Chronic obstructive pulmonary disease
     Dosage: 1.25 MICROGRAM, 2 PUFFS ONCE DAILY
  11. PHENYTOIN [Concomitant]
     Active Substance: PHENYTOIN
     Indication: Epilepsy
     Dosage: 100 MILLIGRAM, 1 TABLET IN THE MORNING AND BEDTIME
  12. OMEPRAZOLE [Concomitant]
     Active Substance: OMEPRAZOLE
     Indication: Gastrooesophageal reflux disease
     Dosage: 40 MILLIGRAM, 1 TABLET IN THE MORNING
  13. ATORVASTATIN [Concomitant]
     Active Substance: ATORVASTATIN
     Indication: Hyperlipidaemia
     Dosage: 40 MILLIGRAM, 1 TABLET IN THE MORNING
  14. POTASSIUM CHLORIDE [Concomitant]
     Active Substance: POTASSIUM CHLORIDE
     Indication: Hypokalaemia
     Dosage: 20 MICROEQUIVALENT, 1 TABLET IN THE MORNING
  15. LEVOTHYROXINE [Concomitant]
     Active Substance: LEVOTHYROXINE
     Indication: Hypothyroidism
     Dosage: 25 MICROGRAM, 1 TABLET IN THE MORNING
  16. FUROSEMIDE [Concomitant]
     Active Substance: FUROSEMIDE
     Indication: Ischaemic cardiomyopathy
     Dosage: 80 MILLIGRAM, 1 TABLET ONCE DAILY
  17. NITROGLYCERIN [Concomitant]
     Active Substance: NITROGLYCERIN
     Indication: Ischaemic cardiomyopathy
     Dosage: 0.4 MILLIGRAM, 1 TABLET EVERY 5 MIN AS NEEDED
  18. SOTALOL [Concomitant]
     Active Substance: SOTALOL
     Indication: Ischaemic cardiomyopathy
     Dosage: 120 MILLIGRAM, 1 TABLET IN THE MORNING AND EVENING
  19. GABAPENTIN [Concomitant]
     Active Substance: GABAPENTIN
     Indication: Neuropathy peripheral
     Dosage: 100 MILLIGRAM, 1 CAPSULE IN THE MORNING, EVENING AND BEDTIME
  20. PREGABALIN [Concomitant]
     Active Substance: PREGABALIN
     Indication: Neuropathy peripheral
     Dosage: 150 MILLIGRAM, 1 CAPSULE IN THE MORNING AND EVENING
  21. AMITRIPTYLINE [Concomitant]
     Active Substance: AMITRIPTYLINE
     Dosage: 75 MILLIGRAM, 1 TABLET AT BEDTIME
  22. VITAMINS [Concomitant]
     Active Substance: VITAMINS
     Dosage: TABLET IN THE MORNING, FOR NUTRIENT DEFICIENCY
  23. TRAMADOL [Concomitant]
     Active Substance: TRAMADOL
     Indication: Osteoarthritis
     Dosage: 50 MILLIGRAM, 1 TABLET IN THE MORNING, EVENING, AND BEDTIME
  24. ALENDRONATE [Concomitant]
     Active Substance: ALENDRONATE SODIUM
     Indication: Osteoporosis
     Dosage: 70 MILLIGRAM, 1 TABLET ONCE A WEEK

REACTIONS (1)
  - Drug-genetic interaction [Recovering/Resolving]
